FAERS Safety Report 5640101-3 (Version None)
Quarter: 2008Q1

REPORT INFORMATION
  Report Type: 
  Country: None (occurrence: None)
  Receive Date: 20080226
  Receipt Date: 20080226
  Transmission Date: 20080703
  Serious: Yes (Hospitalization)
  Sender: FDA-Public Use
  Company Number: None

PATIENT
  Sex: Female
  Weight: 50 kg

DRUGS (1)
  1. TEMOZOLOMIDE [Suspect]
     Dosage: 4800 MG

REACTIONS (4)
  - ANOREXIA [None]
  - DEHYDRATION [None]
  - NAUSEA [None]
  - VOMITING [None]
